FAERS Safety Report 25785665 (Version 1)
Quarter: 2025Q3

REPORT INFORMATION
  Report Type: Spontaneous
  Country: US (occurrence: US)
  Receive Date: 20250910
  Receipt Date: 20250910
  Transmission Date: 20251021
  Serious: Yes (Other)
  Sender: VIVUS
  Company Number: US-VIVUS LLC-2025V10000651

PATIENT

DRUGS (1)
  1. QSYMIA [Suspect]
     Active Substance: PHENTERMINE HYDROCHLORIDE\TOPIRAMATE
     Indication: Product used for unknown indication
     Dosage: 15MG/92MG DOSAGE FORM, QD
     Route: 048

REACTIONS (1)
  - Breast cancer [Unknown]
